FAERS Safety Report 8144972-0 (Version None)
Quarter: 2012Q1

REPORT INFORMATION
  Report Type: 
  Country: None (occurrence: None)
  Receive Date: 20120214
  Receipt Date: 20120206
  Transmission Date: 20120608
  Serious: Yes (Other)
  Sender: FDA-Public Use
  Company Number: 128876-1

PATIENT
  Sex: Female

DRUGS (1)
  1. ACETYLCYSTEINE [Suspect]
     Indication: GASTRIC ULCER
     Dosage: 5 ML TID PRN FOR ^CONGESTION^ OR ^STOMACH ULCER^

REACTIONS (2)
  - MEDICATION ERROR [None]
  - POOR QUALITY DRUG ADMINISTERED [None]
